FAERS Safety Report 4687429-1 (Version None)
Quarter: 2005Q2

REPORT INFORMATION
  Report Type: 
  Country: None (occurrence: None)
  Receive Date: 20050609
  Receipt Date: 20050609
  Transmission Date: 20051028
  Serious: Yes (Hospitalization)
  Sender: FDA-Public Use
  Company Number: None

PATIENT
  Age: 53 Year
  Sex: Female
  Weight: 85 kg

DRUGS (8)
  1. ARSENIC TRIOXIDE [Suspect]
     Indication: MULTIPLE MYELOMA
     Dosage: 22 MG QD X 5 DAYS INTRAVENOU
     Route: 042
     Dates: start: 20040510, end: 20040518
  2. AMLODIPINE [Concomitant]
  3. ESTROGEN [Concomitant]
  4. FEXOFENADINE HCL [Concomitant]
  5. LEVOTHYROXINE SODIUM [Concomitant]
  6. LORAZEPAM [Concomitant]
  7. PROCLOPERAZINE [Concomitant]
  8. SERTRALINE HCL [Concomitant]

REACTIONS (4)
  - BLOOD CREATININE INCREASED [None]
  - NAUSEA [None]
  - ORAL INTAKE REDUCED [None]
  - PYREXIA [None]
